FAERS Safety Report 20714381 (Version 2)
Quarter: 2022Q2

REPORT INFORMATION
  Report Type: Report from Study
  Country: NL (occurrence: NL)
  Receive Date: 20220415
  Receipt Date: 20220428
  Transmission Date: 20220721
  Serious: Yes (Other)
  Sender: FDA-Public Use
  Company Number: NL-AstraZeneca-2022A132546

PATIENT
  Age: 0 Year
  Sex: Female
  Weight: 9 kg

DRUGS (4)
  1. SYNAGIS [Suspect]
     Active Substance: PALIVIZUMAB
     Indication: Premature baby
     Route: 030
     Dates: start: 20210812
  2. SYNAGIS [Suspect]
     Active Substance: PALIVIZUMAB
     Indication: Antiviral prophylaxis
  3. CETOMACROGOLCR + 20% VASELINE [Concomitant]
     Route: 065
  4. MACROGOL PDR V DR SACH 4G [Concomitant]
     Route: 065

REACTIONS (3)
  - Seizure [Recovered/Resolved]
  - COVID-19 [Recovered/Resolved]
  - Laryngitis [Recovered/Resolved]

NARRATIVE: CASE EVENT DATE: 20220327
